FAERS Safety Report 6696070-0 (Version None)
Quarter: 2010Q2

REPORT INFORMATION
  Report Type: 
  Country: None (occurrence: None)
  Receive Date: 20100426
  Receipt Date: 20100419
  Transmission Date: 20101027
  Serious: Yes (Death, Hospitalization)
  Sender: FDA-Public Use
  Company Number: PHHY2010CA23160

PATIENT
  Sex: Male
  Weight: 66.032 kg

DRUGS (1)
  1. CLOZARIL [Suspect]
     Dosage: 300 MG,(200 MG QHS, 100 MG QAM)
     Dates: start: 20020114

REACTIONS (3)
  - AGGRESSION [None]
  - ATRIAL HYPERTROPHY [None]
  - DEATH [None]
